FAERS Safety Report 9847168 (Version 2)
Quarter: 2014Q1

REPORT INFORMATION
  Report Type: Report from Study
  Country: US (occurrence: US)
  Receive Date: 20140127
  Receipt Date: 20140127
  Transmission Date: 20141002
  Serious: Yes (Other)
  Sender: FDA-Public Use
  Company Number: US-US-EMD SERONO, INC.-7256506

PATIENT
  Sex: Female

DRUGS (3)
  1. REBIF [Suspect]
     Indication: MULTIPLE SCLEROSIS
     Route: 058
     Dates: end: 201307
  2. REBIF [Suspect]
     Route: 058
     Dates: start: 20131103
  3. RITUXAN [Suspect]
     Indication: RHEUMATOID ARTHRITIS

REACTIONS (10)
  - Ear pain [Not Recovered/Not Resolved]
  - Oropharyngeal pain [Not Recovered/Not Resolved]
  - Depression [Not Recovered/Not Resolved]
  - Headache [Not Recovered/Not Resolved]
  - Brain hypoxia [Not Recovered/Not Resolved]
  - Hernia [Unknown]
  - Memory impairment [Not Recovered/Not Resolved]
  - Barium swallow abnormal [Unknown]
  - Sleep apnoea syndrome [Not Recovered/Not Resolved]
  - Wheezing [Not Recovered/Not Resolved]
